FAERS Safety Report 10189446 (Version 1)
Quarter: 2014Q2

REPORT INFORMATION
  Report Type: Spontaneous
  Country: FR (occurrence: FR)
  Receive Date: 20140522
  Receipt Date: 20140522
  Transmission Date: 20141212
  Serious: Yes (Hospitalization)
  Sender: FDA-Public Use
  Company Number: FR-BRISTOL-MYERS SQUIBB COMPANY-20741609

PATIENT
  Age: 49 Year
  Sex: Male

DRUGS (8)
  1. HYDREA CAPS 500 MG [Suspect]
     Indication: ESSENTIAL THROMBOCYTHAEMIA
     Dates: start: 200707, end: 201206
  2. XAGRID [Suspect]
     Indication: ESSENTIAL THROMBOCYTHAEMIA
     Dosage: UP TO 2.5 MG DAILY
     Route: 048
     Dates: start: 201207
  3. VERCYTE [Suspect]
     Indication: ESSENTIAL THROMBOCYTHAEMIA
     Route: 048
     Dates: start: 201208
  4. LEVOTHYROX [Concomitant]
     Dosage: SCORED TAB
     Dates: start: 2011
  5. PREVISCAN [Concomitant]
     Indication: ANTIPHOSPHOLIPID SYNDROME
     Dates: start: 2007
  6. KARDEGIC [Concomitant]
     Indication: TRANSIENT ISCHAEMIC ATTACK
     Route: 048
     Dates: start: 2009
  7. ALTEIS [Concomitant]
     Indication: HYPERTENSION
     Dates: start: 2009
  8. LYRICA [Concomitant]
     Indication: RESTLESS LEGS SYNDROME
     Dosage: CAPS
     Dates: start: 2009

REACTIONS (1)
  - Meningioma [Not Recovered/Not Resolved]
